FAERS Safety Report 8317862-8 (Version None)
Quarter: 2012Q2

REPORT INFORMATION
  Report Type: 
  Country: None (occurrence: None)
  Receive Date: 20120427
  Receipt Date: 20120420
  Transmission Date: 20120825
  Serious: Yes (Other)
  Sender: FDA-Public Use
  Company Number: AU-PFIZER INC-2011304660

PATIENT
  Age: 16 Year
  Sex: Female
  Weight: 62 kg

DRUGS (3)
  1. BENEFIX [Suspect]
     Indication: FACTOR IX DEFICIENCY
     Dosage: TOTAL CUMULATIVE DOSE OF 28,500 UNITS;9 EXPOSURE DAYS AND AN ESTIMATED NUMBER OF EXPOSURE DAYS {20
     Dates: start: 20040212
  2. BENEFIX [Suspect]
     Dosage: 3000 IU, SINGLE
     Route: 042
     Dates: start: 20111101, end: 20111101
  3. BENEFIX [Suspect]
     Indication: DENTAL CARE
     Dosage: 3000 IU, SINGLE
     Route: 042
     Dates: start: 20111115, end: 20111115

REACTIONS (7)
  - RASH PRURITIC [None]
  - URTICARIA [None]
  - EYE PRURITUS [None]
  - RASH [None]
  - PARAESTHESIA ORAL [None]
  - HYPERSENSITIVITY [None]
  - PRURITUS [None]
